FAERS Safety Report 20898995 (Version 4)
Quarter: 2022Q3

REPORT INFORMATION
  Report Type: Report from Study
  Country: US (occurrence: US)
  Receive Date: 20220601
  Receipt Date: 20220927
  Transmission Date: 20221026
  Serious: Yes (Hospitalization, Other)
  Sender: FDA-Public Use
  Company Number: US-ABBVIE-22K-163-4415893-00

PATIENT
  Sex: Female
  Weight: 65.317 kg

DRUGS (8)
  1. HUMIRA [Suspect]
     Active Substance: ADALIMUMAB
     Indication: Rheumatoid arthritis
     Dosage: CITRATE FREE
     Route: 058
     Dates: start: 202201, end: 2022
  2. HUMIRA [Suspect]
     Active Substance: ADALIMUMAB
     Indication: Uveitis
     Dosage: CITRATE FREE
     Route: 058
     Dates: start: 2022
  3. HUMIRA [Suspect]
     Active Substance: ADALIMUMAB
     Indication: Colitis ulcerative
  4. HUMIRA [Suspect]
     Active Substance: ADALIMUMAB
     Indication: Eye inflammation
  5. PFIZER-BIONTECH COVID-19 VACCINE [Concomitant]
     Active Substance: TOZINAMERAN
     Indication: COVID-19 immunisation
     Dosage: TIME INTERVAL: TOTAL: FIRST DOSE -  ONCE
     Route: 030
     Dates: start: 20210122, end: 20210122
  6. PFIZER-BIONTECH COVID-19 VACCINE [Concomitant]
     Active Substance: TOZINAMERAN
     Indication: COVID-19 immunisation
     Dosage: TIME INTERVAL: 1 TOTAL: SECOND DOSE -  ONCE
     Route: 030
     Dates: start: 20210212, end: 20210212
  7. PFIZER-BIONTECH COVID-19 VACCINE [Concomitant]
     Active Substance: TOZINAMERAN
     Indication: COVID-19 immunisation
     Dosage: TIME INTERVAL: 1 TOTAL: THIRD DOSE -  ONCE
     Route: 030
     Dates: start: 20220406, end: 20220406
  8. SULFASALAZINE [Concomitant]
     Active Substance: SULFASALAZINE
     Indication: Colitis ulcerative

REACTIONS (5)
  - Volvulus [Recovering/Resolving]
  - Intestinal obstruction [Recovered/Resolved]
  - Hernia [Recovering/Resolving]
  - Off label use [Unknown]
  - Eye infection [Recovered/Resolved]

NARRATIVE: CASE EVENT DATE: 20220101
